FAERS Safety Report 13075011 (Version 1)
Quarter: 2016Q4

REPORT INFORMATION
  Report Type: Report from Study
  Country: US (occurrence: US)
  Receive Date: 20161230
  Receipt Date: 20161230
  Transmission Date: 20170207
  Serious: Yes (Hospitalization)
  Sender: FDA-Public Use
  Company Number: US-AMGEN-USACT2016182610

PATIENT
  Age: 61 Year
  Sex: Female
  Weight: 59.4 kg

DRUGS (2)
  1. CARFILZOMIB [Suspect]
     Active Substance: CARFILZOMIB
     Indication: PLASMA CELL MYELOMA
     Dosage: 56 MG/M2, PER CHEMO REGIM
     Route: 042
     Dates: start: 20161215
  2. MELPHALAN [Suspect]
     Active Substance: MELPHALAN
     Indication: PLASMA CELL MYELOMA
     Dosage: 100 MG/M2, PER CHEMO REGIM
     Route: 042
     Dates: start: 20161217

REACTIONS (4)
  - Oesophagitis [Unknown]
  - Nausea [Unknown]
  - Renal failure [Unknown]
  - Vomiting [Unknown]

NARRATIVE: CASE EVENT DATE: 20161220
